FAERS Safety Report 8183223-8 (Version None)
Quarter: 2012Q1

REPORT INFORMATION
  Report Type: 
  Country: None (occurrence: None)
  Receive Date: 20120305
  Receipt Date: 20120224
  Transmission Date: 20120608
  Serious: Yes (Other)
  Sender: FDA-Public Use
  Company Number: JP-ASTELLAS-2012JP001366

PATIENT
  Age: 24 Year
  Sex: Male

DRUGS (1)
  1. FUNGUARD [Suspect]
     Dosage: 50 MG, UNKNOWN/D
     Route: 041
     Dates: start: 20120210

REACTIONS (1)
  - RHABDOMYOLYSIS [None]
